FAERS Safety Report 7293162-2 (Version None)
Quarter: 2011Q1

REPORT INFORMATION
  Report Type: 
  Country: None (occurrence: None)
  Receive Date: 20110215
  Receipt Date: 20110202
  Transmission Date: 20110831
  Serious: Yes (Life-Threatening, Hospitalization, Disabling, Other)
  Sender: FDA-Public Use
  Company Number: US-ACTELION-A-US2011-43484

PATIENT

DRUGS (3)
  1. REVATIO [Concomitant]
  2. TRACLEER [Suspect]
     Indication: PULMONARY ARTERIAL HYPERTENSION
     Dosage: UNK
     Route: 048
     Dates: start: 20061128
  3. COUMADIN [Concomitant]

REACTIONS (6)
  - FLUID RETENTION [None]
  - COLON CANCER [None]
  - PARACENTESIS [None]
  - ANAEMIA [None]
  - HEPATIC CANCER METASTATIC [None]
  - BIOPSY LIVER [None]
